FAERS Safety Report 13842248 (Version 1)
Quarter: 2017Q3

REPORT INFORMATION
  Report Type: Spontaneous
  Country: US (occurrence: US)
  Receive Date: 20170807
  Receipt Date: 20170807
  Transmission Date: 20171127
  Serious: No
  Sender: FDA-Public Use
  Company Number: None

PATIENT
  Age: 73 Year
  Sex: Male
  Weight: 77 kg

DRUGS (2)
  1. ASA [Concomitant]
     Active Substance: ASPIRIN
  2. SIMVASTATIN, 40 MG [Suspect]
     Active Substance: SIMVASTATIN
     Indication: HIGH DENSITY LIPOPROTEIN
     Dates: start: 20170117, end: 20170801

REACTIONS (3)
  - Reaction to excipient [None]
  - Product contamination [None]
  - Coeliac disease [None]

NARRATIVE: CASE EVENT DATE: 20170807
